FAERS Safety Report 22026842 (Version 1)
Quarter: 2023Q1

REPORT INFORMATION
  Report Type: Spontaneous
  Country: ES (occurrence: ES)
  Receive Date: 20230223
  Receipt Date: 20230223
  Transmission Date: 20230418
  Serious: Yes (Hospitalization)
  Sender: FDA-Public Use
  Company Number: ES-EXELIXIS-CABO-23061037

PATIENT
  Age: 52 Year
  Sex: Female
  Weight: 53 kg

DRUGS (1)
  1. CABOMETYX [Suspect]
     Active Substance: CABOZANTINIB S-MALATE
     Indication: Malignant neoplasm progression
     Dosage: 1 24H
     Route: 048
     Dates: start: 20230114, end: 20230129

REACTIONS (2)
  - Dermatitis exfoliative generalised [Recovered/Resolved]
  - Transaminases increased [Recovered/Resolved]

NARRATIVE: CASE EVENT DATE: 20230129
